FAERS Safety Report 8501831-9 (Version None)
Quarter: 2012Q3

REPORT INFORMATION
  Report Type: 
  Country: None (occurrence: None)
  Receive Date: 20120705
  Receipt Date: 20120705
  Transmission Date: 20120928
  Serious: Yes (Life-Threatening, Hospitalization)
  Sender: FDA-Public Use
  Company Number: None

PATIENT
  Sex: Female
  Weight: 57.6068 kg

DRUGS (1)
  1. PRADAXA [Suspect]
     Indication: ATRIAL FIBRILLATION
     Dosage: 75 MG BID PO
     Route: 048
     Dates: start: 20120401, end: 20120625

REACTIONS (4)
  - HAEMOGLOBIN DECREASED [None]
  - HAEMATOCHEZIA [None]
  - COAGULOPATHY [None]
  - HAEMODIALYSIS [None]
